FAERS Safety Report 8386906-X (Version None)
Quarter: 2012Q2

REPORT INFORMATION
  Report Type: 
  Country: None (occurrence: None)
  Receive Date: 20120525
  Receipt Date: 20120522
  Transmission Date: 20120825
  Serious: Yes (Death, Hospitalization)
  Sender: FDA-Public Use
  Company Number: JP-JNJFOC-20120517675

PATIENT
  Age: 63 Year
  Sex: Female
  Weight: 56 kg

DRUGS (29)
  1. DOXORUBICIN HCL [Suspect]
     Dosage: CYCLE 1
     Route: 042
     Dates: start: 20100326, end: 20100326
  2. ANTEBATE [Concomitant]
     Route: 061
     Dates: start: 20100520, end: 20110217
  3. BETAMETHASONE SODIUM PHOSPHATE [Suspect]
     Indication: PALMAR-PLANTAR ERYTHRODYSAESTHESIA SYNDROME
     Route: 061
     Dates: start: 20100408, end: 20101205
  4. DEXAMETHASONE SODIUM PHOSPHATE [Concomitant]
     Route: 042
     Dates: start: 20100520, end: 20100520
  5. LOXONIN [Suspect]
     Indication: PRODUCT USED FOR UNKNOWN INDICATION
     Route: 048
     Dates: end: 20100403
  6. HEPARIN [Suspect]
     Indication: PROPHYLAXIS
     Route: 061
     Dates: start: 20100513
  7. DEXAMETHASONE SODIUM PHOSPHATE [Concomitant]
     Route: 042
     Dates: start: 20100326, end: 20100326
  8. PREDNISOLONE [Concomitant]
     Route: 048
     Dates: start: 20100630, end: 20100706
  9. DOXORUBICIN HCL [Suspect]
     Dosage: CYCLE 2
     Route: 042
     Dates: start: 20100423, end: 20100423
  10. DEXAMETHASONE SODIUM PHOSPHATE [Concomitant]
     Route: 042
     Dates: start: 20100624, end: 20100624
  11. GLUCOSE [Concomitant]
     Route: 042
     Dates: start: 20100624, end: 20100624
  12. DOXORUBICIN HCL [Suspect]
     Dosage: CYCLE 3
     Route: 042
     Dates: start: 20100520, end: 20100520
  13. CLOBETASOL PROPIONATE [Suspect]
     Indication: PALMAR-PLANTAR ERYTHRODYSAESTHESIA SYNDROME
     Route: 061
     Dates: start: 20100419, end: 20101130
  14. GLUCOSE [Concomitant]
     Route: 042
     Dates: start: 20100520, end: 20100520
  15. KINDAVATE [Concomitant]
     Route: 061
     Dates: start: 20100520, end: 20101130
  16. PREDNISOLONE [Concomitant]
     Route: 048
     Dates: start: 20100624, end: 20100629
  17. PRIMPERAN TAB [Concomitant]
     Route: 042
     Dates: start: 20100817, end: 20100817
  18. NEOMALLERMIN TR [Concomitant]
     Route: 048
     Dates: start: 20101215, end: 20101217
  19. DOXORUBICIN HCL [Suspect]
     Indication: OVARIAN CANCER RECURRENT
     Dosage: CYCLE 5
     Route: 042
     Dates: start: 20100803, end: 20100803
  20. MUCOSTA [Concomitant]
     Route: 048
     Dates: end: 20100403
  21. RESTAMIN [Concomitant]
     Route: 061
     Dates: start: 20101215, end: 20101230
  22. DEXAMETHASONE SODIUM PHOSPHATE [Concomitant]
     Route: 042
     Dates: start: 20100803, end: 20100803
  23. PYDOXAL [Concomitant]
     Indication: PROPHYLAXIS
     Route: 048
     Dates: start: 20100327, end: 20100403
  24. ALLEGRA [Concomitant]
     Indication: RASH
     Route: 048
     Dates: start: 20100408, end: 20100706
  25. FAMOTIDINE [Concomitant]
     Route: 042
     Dates: start: 20100818, end: 20100819
  26. DOXORUBICIN HCL [Suspect]
     Dosage: CYCLE 4
     Route: 042
     Dates: start: 20100624, end: 20100624
  27. GLUCOSE [Concomitant]
     Route: 042
     Dates: start: 20100803, end: 20100803
  28. GLUCOSE [Concomitant]
     Route: 042
     Dates: start: 20100326, end: 20100326
  29. AN UNKNOWN MEDICATION [Concomitant]
     Indication: PALMAR-PLANTAR ERYTHRODYSAESTHESIA SYNDROME
     Route: 061
     Dates: start: 20100403

REACTIONS (6)
  - SUBILEUS [None]
  - NEOPLASM PROGRESSION [None]
  - OVARIAN CANCER RECURRENT [None]
  - PALMAR-PLANTAR ERYTHRODYSAESTHESIA SYNDROME [None]
  - STOMATITIS [None]
  - ECZEMA [None]
